FAERS Safety Report 25943045 (Version 1)
Quarter: 2025Q4

REPORT INFORMATION
  Report Type: Spontaneous
  Country: US (occurrence: None)
  Receive Date: 20251020
  Receipt Date: 20251020
  Transmission Date: 20260118
  Serious: Yes (unspecified)
  Sender: FDA-CTU
  Company Number: None

PATIENT
  Age: 69 Year
  Sex: Male
  Weight: 81 kg

DRUGS (1)
  1. CEFTRIAXONE [Suspect]
     Active Substance: CEFTRIAXONE
     Indication: Urinary tract infection
     Dosage: FREQUENCY : DAILY;?
     Route: 042
     Dates: start: 20251011, end: 20251014

REACTIONS (6)
  - Rash [None]
  - Ocular hyperaemia [None]
  - Pruritus [None]
  - Pyrexia [None]
  - Oropharyngeal pain [None]
  - Swelling face [None]

NARRATIVE: CASE EVENT DATE: 20251013
